FAERS Safety Report 8128420-2 (Version None)
Quarter: 2012Q1

REPORT INFORMATION
  Report Type: 
  Country: None (occurrence: None)
  Receive Date: 20120210
  Receipt Date: 20120127
  Transmission Date: 20120608
  Serious: Yes (Other)
  Sender: FDA-Public Use
  Company Number: US-ROCHE-671604

PATIENT
  Sex: Female

DRUGS (3)
  1. BLINDED BELATACEPT [Suspect]
     Indication: PROPHYLAXIS AGAINST TRANSPLANT REJECTION
     Dosage: DOSE BLINDED
     Route: 042
  2. MYCOPHENOLATE MOFETIL (CELLCEPT) [Suspect]
     Indication: PROPHYLAXIS AGAINST TRANSPLANT REJECTION
     Dosage: START DATE: 22 MARCH 2009
     Route: 065
  3. PREDNISONE TAB [Suspect]
     Indication: PROPHYLAXIS AGAINST TRANSPLANT REJECTION
     Route: 065

REACTIONS (3)
  - BASOSQUAMOUS CARCINOMA [None]
  - ANOGENITAL DYSPLASIA [None]
  - SQUAMOUS CELL CARCINOMA OF SKIN [None]
